FAERS Safety Report 14851601 (Version 2)
Quarter: 2018Q2

REPORT INFORMATION
  Report Type: Report from Study
  Country: None (occurrence: DE)
  Receive Date: 20180507
  Receipt Date: 20180621
  Transmission Date: 20180711
  Serious: Yes (Hospitalization)
  Sender: FDA-Public Use
  Company Number: DE-ABBVIE-18K-062-2345732-00

PATIENT
  Age: 76 Year
  Sex: Male
  Weight: 91.2 kg

DRUGS (14)
  1. LYRICA [Concomitant]
     Active Substance: PREGABALIN
     Indication: PARKINSON^S DISEASE
  2. DUODOPA [Suspect]
     Active Substance: CARBIDOPA\LEVODOPA
     Dosage: CRD 3.9 ML/H CRN 3,2 ML/H ED 0,5 ML
     Route: 050
  3. DRONABINOL. [Concomitant]
     Active Substance: DRONABINOL
     Indication: PARKINSON^S DISEASE
  4. MAGNESIUM VERLA N [Concomitant]
     Active Substance: MAGNESIUM
     Indication: MUSCLE SPASMS
  5. MACROGOL ABZ BALANCE [Concomitant]
     Indication: CONSTIPATION PROPHYLAXIS
  6. DIGIMERCK [Concomitant]
     Active Substance: DIGITOXIN
     Indication: PARKINSON^S DISEASE
  7. LYRICA [Concomitant]
     Active Substance: PREGABALIN
     Indication: PAIN
  8. MARCUMAR [Concomitant]
     Active Substance: PHENPROCOUMON
     Indication: VENOUS THROMBOSIS
  9. MADOPAR LT [Concomitant]
     Active Substance: BENSERAZIDE HYDROCHLORIDE\LEVODOPA
     Indication: PRODUCT USED FOR UNKNOWN INDICATION
     Dosage: 100MG/25MG
  10. DUODOPA [Suspect]
     Active Substance: CARBIDOPA\LEVODOPA
     Indication: PARKINSON^S DISEASE
     Dosage: MD 5 ML CRD 4.4 ML/H CRN 3.2 ML/H ED 0.5 ML
     Route: 050
     Dates: start: 20140910
  11. MIRTAZAPIN [Concomitant]
     Active Substance: MIRTAZAPINE
     Indication: DEPRESSION
     Dosage: 0.5 PER DAY
  12. PANCREATIN [Concomitant]
     Active Substance: PANCRELIPASE
     Indication: PANCREATIC FAILURE
  13. DEKRISTOL [Concomitant]
     Active Substance: CHOLECALCIFEROL
     Indication: VITAMIN D DEFICIENCY
  14. PANTOPRAZOLE SODIUM. [Concomitant]
     Active Substance: PANTOPRAZOLE SODIUM
     Indication: PROPHYLAXIS

REACTIONS (16)
  - Atrial fibrillation [Unknown]
  - Aortic valve sclerosis [Unknown]
  - Pericardial effusion [Unknown]
  - Tricuspid valve incompetence [Unknown]
  - Cardiac failure [Not Recovered/Not Resolved]
  - Cardiomegaly [Unknown]
  - Pacemaker generated arrhythmia [Unknown]
  - Mitral valve incompetence [Unknown]
  - Oedema peripheral [Unknown]
  - Hyperkinesia [Recovering/Resolving]
  - Dyspnoea [Recovered/Resolved]
  - Lung disorder [Recovering/Resolving]
  - General physical health deterioration [Unknown]
  - Device issue [Unknown]
  - Device deployment issue [Unknown]
  - Atrial fibrillation [Recovered/Resolved]

NARRATIVE: CASE EVENT DATE: 20180427
